FAERS Safety Report 7199967-0 (Version None)
Quarter: 2010Q4

REPORT INFORMATION
  Report Type: 
  Country: None (occurrence: None)
  Receive Date: 20101228
  Receipt Date: 20101203
  Transmission Date: 20110411
  Serious: No
  Sender: FDA-Public Use
  Company Number: US-PFIZER INC-2010163951

PATIENT

DRUGS (1)
  1. LIPITOR [Suspect]
     Dosage: 40 MG, EVERY NIGHT

REACTIONS (2)
  - NASOPHARYNGITIS [None]
  - SINUSITIS [None]
